FAERS Safety Report 25347999 (Version 3)
Quarter: 2025Q2

REPORT INFORMATION
  Report Type: Spontaneous
  Country: CL (occurrence: CL)
  Receive Date: 20250522
  Receipt Date: 20250610
  Transmission Date: 20250717
  Serious: No
  Sender: PFIZER
  Company Number: CL-PFIZER INC-PV202500060439

PATIENT
  Age: 9 Year
  Sex: Female

DRUGS (1)
  1. GENOTROPIN [Suspect]
     Active Substance: SOMATROPIN
     Dates: start: 20240906

REACTIONS (2)
  - Drug dose omission by device [Unknown]
  - Device mechanical issue [Unknown]
